FAERS Safety Report 8571267-3 (Version None)
Quarter: 2012Q3

REPORT INFORMATION
  Report Type: 
  Country: None (occurrence: None)
  Receive Date: 20120730
  Receipt Date: 20120730
  Transmission Date: 20120928
  Serious: Yes (Life-Threatening, Hospitalization)
  Sender: FDA-Public Use
  Company Number: None

PATIENT
  Age: 60 Year
  Sex: Male
  Weight: 138.6 kg

DRUGS (2)
  1. VANCOMYCIN [Suspect]
     Indication: UPPER RESPIRATORY TRACT INFECTION
     Dosage: 2500MG OTHER IV
     Route: 042
     Dates: start: 20120616, end: 20120616
  2. PIPERACILLIN AND TAZOBACTAM [Suspect]
     Indication: PNEUMONIA
     Dosage: 2.25GM OTHER IV
     Route: 042
     Dates: start: 20120616, end: 20120618

REACTIONS (6)
  - DYSPNOEA [None]
  - HYPOTENSION [None]
  - RESPIRATORY DEPRESSION [None]
  - TACHYCARDIA [None]
  - ANAPHYLACTIC REACTION [None]
  - CHILLS [None]
